FAERS Safety Report 24955974 (Version 1)
Quarter: 2025Q1

REPORT INFORMATION
  Report Type: Spontaneous
  Country: US (occurrence: US)
  Receive Date: 20250211
  Receipt Date: 20250211
  Transmission Date: 20250409
  Serious: Yes (Other)
  Sender: BAYER HEALTHCARE PHARMACEUTICALS INC.
  Company Number: US-BAYER-2025A017816

PATIENT
  Age: 76 Year
  Sex: Male

DRUGS (23)
  1. NUBEQA [Suspect]
     Active Substance: DAROLUTAMIDE
     Indication: Prostate cancer
     Dosage: 300 MG, BID
  2. NUBEQA [Suspect]
     Active Substance: DAROLUTAMIDE
     Indication: Prostate cancer
     Dosage: 600 MG, BID
     Dates: start: 20230530
  3. ORGOVYX [Suspect]
     Active Substance: RELUGOLIX
     Indication: Prostate cancer
     Dosage: 360 MG, QD
     Route: 048
     Dates: start: 202302, end: 202302
  4. ORGOVYX [Suspect]
     Active Substance: RELUGOLIX
     Indication: Prostate cancer
     Dosage: 120 MG, QD
     Route: 048
     Dates: start: 202302
  5. CARVEDILOL [Concomitant]
     Active Substance: CARVEDILOL
  6. ATORVASTATIN CALCIUM [Concomitant]
     Active Substance: ATORVASTATIN CALCIUM
  7. OMEPRAZOLE [Concomitant]
     Active Substance: OMEPRAZOLE
  8. ASPIRIN [Concomitant]
     Active Substance: ASPIRIN
  9. CHOLECALCIFEROL [Concomitant]
     Active Substance: CHOLECALCIFEROL
  10. VITAMINS [Concomitant]
     Active Substance: VITAMINS
  11. MINERALS NOS [Concomitant]
     Active Substance: MINERALS
  12. CALCIUM [Concomitant]
     Active Substance: CALCIUM
  13. TRAVOPROST [Concomitant]
     Active Substance: TRAVOPROST
  14. BRINZOLAMIDE [Concomitant]
     Active Substance: BRINZOLAMIDE
  15. DORZOLAMIDE HYDROCHLORIDE\TIMOLOL MALEATE [Concomitant]
     Active Substance: DORZOLAMIDE HYDROCHLORIDE\TIMOLOL MALEATE
  16. COLACE [Concomitant]
     Active Substance: DOCUSATE SODIUM
  17. ASCORBIC ACID [Concomitant]
     Active Substance: ASCORBIC ACID
  18. CUPRIC OXIDE [Concomitant]
     Active Substance: CUPRIC OXIDE
  19. .ALPHA.-TOCOPHEROL ACETATE, DL- [Concomitant]
     Active Substance: .ALPHA.-TOCOPHEROL ACETATE, DL-
  20. LUTEIN [Concomitant]
     Active Substance: LUTEIN
  21. ZEAXANTHIN [Concomitant]
     Active Substance: ZEAXANTHIN
  22. ZINC OXIDE [Concomitant]
     Active Substance: ZINC OXIDE
  23. MIRALAX [Concomitant]
     Active Substance: POLYETHYLENE GLYCOL 3350
     Indication: Constipation

REACTIONS (3)
  - Pleural effusion [None]
  - Nasopharyngitis [Recovering/Resolving]
  - Faeces hard [None]
